FAERS Safety Report 12774732 (Version 3)
Quarter: 2017Q3

REPORT INFORMATION
  Report Type: Spontaneous
  Country: TR (occurrence: TR)
  Receive Date: 20160923
  Receipt Date: 20170825
  Transmission Date: 20171127
  Serious: Yes (Other)
  Sender: FDA-Public Use
  Company Number: TR-009507513-1609TUR010215

PATIENT
  Age: 31 Year
  Sex: Male

DRUGS (3)
  1. VITAMIN A [Suspect]
     Active Substance: VITAMIN A
     Dosage: 200000 INTERNATIONAL UNIT ONCE A DAY FOR 3 DAYS
  2. RIBAVIRIN. [Suspect]
     Active Substance: RIBAVIRIN
     Dosage: 2 G, UNK (LOADING DOSE)
  3. RIBAVIRIN. [Suspect]
     Active Substance: RIBAVIRIN
     Dosage: 1 G, QID ( (MAINTAINENCE DOSE)

REACTIONS (1)
  - Acute kidney injury [Unknown]
